FAERS Safety Report 9312622 (Version 3)
Quarter: 2013Q3

REPORT INFORMATION
  Report Type: Report from Study
  Country: JP (occurrence: JP)
  Receive Date: 20130528
  Receipt Date: 20130918
  Transmission Date: 20140515
  Serious: Yes (Hospitalization)
  Sender: FDA-Public Use
  Company Number: JP-GLAXOSMITHKLINE-B0894342A

PATIENT
  Age: 81 Year
  Sex: Female
  Weight: 62 kg

DRUGS (4)
  1. REVOLADE [Suspect]
     Indication: IMMUNE THROMBOCYTOPENIC PURPURA
     Route: 048
     Dates: start: 20111125, end: 20111201
  2. REVOLADE [Suspect]
     Indication: IMMUNE THROMBOCYTOPENIC PURPURA
     Route: 048
     Dates: start: 20111202, end: 20130129
  3. JANUVIA [Concomitant]
     Route: 048
     Dates: end: 20130226
  4. DIOVAN [Concomitant]
     Route: 048
     Dates: end: 20130226

REACTIONS (6)
  - Urinary tract infection [Recovered/Resolved]
  - Sepsis [Recovered/Resolved]
  - Shock [Recovered/Resolved]
  - Vomiting [Recovered/Resolved]
  - Diarrhoea [Recovered/Resolved]
  - Cerebral infarction [Recovering/Resolving]
